FAERS Safety Report 6339205-1 (Version None)
Quarter: 2009Q3

REPORT INFORMATION
  Report Type: 
  Country: None (occurrence: None)
  Receive Date: 20090903
  Receipt Date: 20090828
  Transmission Date: 20100115
  Serious: Yes (Death, Hospitalization)
  Sender: FDA-Public Use
  Company Number: JP-AVENTIS-200912183JP

PATIENT
  Age: 84 Year
  Sex: Male
  Weight: 49 kg

DRUGS (7)
  1. TAXOTERE [Suspect]
     Dosage: DOSE: AT THE 5TH CYCLE
     Route: 041
     Dates: start: 20090724, end: 20090724
  2. PREDNISOLONE [Concomitant]
     Route: 048
     Dates: start: 20090226
  3. MAGMITT [Concomitant]
     Indication: CONSTIPATION
     Route: 048
     Dates: start: 20081204
  4. VOLTAREN-XR [Concomitant]
     Dosage: DOSE: 1 TAB
     Route: 048
     Dates: start: 20090722
  5. MUCOSTA [Concomitant]
     Indication: GASTRITIS
     Dosage: DOSE: 1 TAB
     Route: 048
     Dates: start: 20090624
  6. TAKEPRON [Concomitant]
     Route: 048
     Dates: start: 20090722
  7. DUROTEP [Concomitant]
     Dates: start: 20090624

REACTIONS (4)
  - BLOOD PRESSURE DECREASED [None]
  - CARDIAC FAILURE [None]
  - SEPTIC SHOCK [None]
  - WHITE BLOOD CELL COUNT DECREASED [None]
